FAERS Safety Report 22605244 (Version 1)
Quarter: 2023Q2

REPORT INFORMATION
  Report Type: Spontaneous
  Country: US (occurrence: None)
  Receive Date: 20230614
  Receipt Date: 20230614
  Transmission Date: 20230722
  Serious: Yes (Hospitalization)
  Sender: FDA-Public Use
  Company Number: None

PATIENT
  Age: 50 Year
  Sex: Male

DRUGS (3)
  1. ENTECAVIR [Suspect]
     Active Substance: ENTECAVIR
     Indication: Pulmonary arterial hypertension
     Dosage: 1MG DAILY ORAL
     Route: 048
     Dates: start: 201601
  2. REMODULIN [Suspect]
     Active Substance: TREPROSTINIL
  3. MYCOPHENOLIC ACID [Suspect]
     Active Substance: MYCOPHENOLIC ACID

REACTIONS (1)
  - Lung transplant [None]

NARRATIVE: CASE EVENT DATE: 20230522
